FAERS Safety Report 22641323 (Version 1)
Quarter: 2023Q2

REPORT INFORMATION
  Report Type: Spontaneous
  Country: US (occurrence: US)
  Receive Date: 20230626
  Receipt Date: 20230626
  Transmission Date: 20230722
  Serious: No
  Sender: FDA-Public Use
  Company Number: US-SA-SAC20230623000745

PATIENT
  Sex: Female

DRUGS (23)
  1. DUPIXENT [Suspect]
     Active Substance: DUPILUMAB
     Indication: Asthma
     Dosage: UNK
     Route: 065
  2. NUCALA [Concomitant]
     Active Substance: MEPOLIZUMAB
  3. TEZSPIRE [Concomitant]
     Active Substance: TEZEPELUMAB-EKKO
  4. ALBUTEROL SULFATE [Concomitant]
     Active Substance: ALBUTEROL SULFATE
  5. ALLEGRA ALLERGY [Concomitant]
     Active Substance: FEXOFENADINE HYDROCHLORIDE
  6. AZELASTINE HYDROCHLORIDE [Concomitant]
     Active Substance: AZELASTINE HYDROCHLORIDE
  7. BENADRYL ALLERGY [Concomitant]
     Active Substance: DIPHENHYDRAMINE HYDROCHLORIDE
  8. BOTOX [Concomitant]
     Active Substance: ONABOTULINUMTOXINA
  9. BREZTRI [Concomitant]
     Active Substance: BUDESONIDE\FORMOTEROL\GLYCOPYRROLATE
  10. CETIRIZINE HYDROCHLORIDE [Concomitant]
     Active Substance: CETIRIZINE HYDROCHLORIDE
  11. DULOXETINE HYDROCHLORIDE [Concomitant]
     Active Substance: DULOXETINE HYDROCHLORIDE
  12. EMGALITY [Concomitant]
     Active Substance: GALCANEZUMAB-GNLM
  13. EPINEPHRINE [Concomitant]
     Active Substance: EPINEPHRINE
  14. GABAPENTIN [Concomitant]
     Active Substance: GABAPENTIN
  15. GEMTESA [Concomitant]
     Active Substance: VIBEGRON
  16. IPRATROPIUM [Concomitant]
     Active Substance: IPRATROPIUM
  17. KEPPRA [Concomitant]
     Active Substance: LEVETIRACETAM
  18. MELOXICAM [Concomitant]
     Active Substance: MELOXICAM
  19. ONDANSETRON [Concomitant]
     Active Substance: ONDANSETRON
  20. TEMAZEPAM [Concomitant]
     Active Substance: TEMAZEPAM
  21. TIZANIDINE HYDROCHLORIDE [Concomitant]
     Active Substance: TIZANIDINE HYDROCHLORIDE
  22. TRAMADOL HCL [Concomitant]
     Active Substance: TRAMADOL HYDROCHLORIDE
  23. UBRELVY [Concomitant]
     Active Substance: UBROGEPANT

REACTIONS (1)
  - Drug ineffective [Unknown]
